FAERS Safety Report 10613956 (Version 1)
Quarter: 2014Q4

REPORT INFORMATION
  Report Type: Spontaneous
  Country: NL (occurrence: NL)
  Receive Date: 20141128
  Receipt Date: 20141128
  Transmission Date: 20150529
  Serious: Yes (Life-Threatening, Hospitalization)
  Sender: FDA-Public Use
  Company Number: NL-009507513-1411NLD010037

PATIENT
  Age: 4 Month
  Sex: Female
  Weight: 2 kg

DRUGS (2)
  1. HYDROCHLOORTHIAZIDE [Concomitant]
     Active Substance: HYDROCHLOROTHIAZIDE
     Dosage: 2MG/KG/DAY IN 2DD
     Dates: start: 20140917, end: 20141106
  2. DIAZOXIDE [Suspect]
     Active Substance: DIAZOXIDE
     Indication: BLOOD INSULIN INCREASED
     Dosage: 8 MG/KG IN 3 DD
     Route: 048
     Dates: start: 20140917, end: 20141104

REACTIONS (1)
  - Pulmonary hypertension [Recovered/Resolved]

NARRATIVE: CASE EVENT DATE: 20141104
